FAERS Safety Report 4370947-3 (Version None)
Quarter: 2004Q2

REPORT INFORMATION
  Report Type: 
  Country: None (occurrence: None)
  Receive Date: 20040601
  Receipt Date: 20040524
  Transmission Date: 20050107
  Serious: Yes (Death, Other)
  Sender: FDA-Public Use
  Company Number: 2004034276

PATIENT

DRUGS (5)
  1. CEFOBID [Suspect]
     Indication: CARDIAC DISORDER
     Dosage: 2 GRAM, INTRAVENOUS
     Route: 042
     Dates: start: 20020808, end: 20020808
  2. CEFOBID [Suspect]
     Indication: DYSPNOEA
     Dosage: 2 GRAM, INTRAVENOUS
     Route: 042
     Dates: start: 20020808, end: 20020808
  3. CEFOBID [Suspect]
     Indication: HEADACHE
     Dosage: 2 GRAM, INTRAVENOUS
     Route: 042
     Dates: start: 20020808, end: 20020808
  4. ALL OTHER THERAPEUTIC PRODUCTS (ALL OTHER THERAPEUTIC PRODUCTS) [Concomitant]
  5. METRONIDAZOLE [Concomitant]

REACTIONS (4)
  - COMA [None]
  - DYSPNOEA [None]
  - HEADACHE [None]
  - PULSE PRESSURE DECREASED [None]
